FAERS Safety Report 18602859 (Version 3)
Quarter: 2021Q1

REPORT INFORMATION
  Report Type: Spontaneous
  Country: US (occurrence: TR)
  Receive Date: 20201210
  Receipt Date: 20210104
  Transmission Date: 20210419
  Serious: Yes (Hospitalization, Other)
  Sender: FDA-Public Use
  Company Number: TR-BIOMARINAP-TR-2020-133771

PATIENT
  Age: 23 Year
  Sex: Female

DRUGS (1)
  1. ALDURAZYME [Suspect]
     Active Substance: LARONIDASE
     Indication: MUCOPOLYSACCHARIDOSIS I
     Dosage: UNK
     Route: 041

REACTIONS (8)
  - Pre-eclampsia [Unknown]
  - Gestational diabetes [Not Recovered/Not Resolved]
  - Arthralgia [Not Recovered/Not Resolved]
  - Pregnancy [Unknown]
  - Stillbirth [Unknown]
  - Hypertension [Not Recovered/Not Resolved]
  - Fatigue [Not Recovered/Not Resolved]
  - Nerve compression [Not Recovered/Not Resolved]
